FAERS Safety Report 18211214 (Version 3)
Quarter: 2025Q2

REPORT INFORMATION
  Report Type: Spontaneous
  Country: ES (occurrence: ES)
  Receive Date: 20200831
  Receipt Date: 20250623
  Transmission Date: 20250716
  Serious: Yes (Other)
  Sender: AUROBINDO
  Company Number: ES-MLMSERVICE-20200814-2439747-1

PATIENT
  Age: 42 Year
  Sex: Female

DRUGS (1)
  1. SERTRALINE [Suspect]
     Active Substance: SERTRALINE HYDROCHLORIDE
     Indication: Product used for unknown indication
     Route: 065

REACTIONS (5)
  - Reversible cerebral vasoconstriction syndrome [Not Recovered/Not Resolved]
  - Quadriplegia [Unknown]
  - Cerebrovascular accident [Unknown]
  - Mutism [Unknown]
  - Subarachnoid haemorrhage [Unknown]
